FAERS Safety Report 4994506-4 (Version None)
Quarter: 2006Q2

REPORT INFORMATION
  Report Type: 
  Country: None (occurrence: None)
  Receive Date: 20060505
  Receipt Date: 20050330
  Transmission Date: 20061013
  Serious: Yes (Hospitalization, Disabling)
  Sender: FDA-Public Use
  Company Number: US-MERCK-0503USA05252

PATIENT
  Age: 64 Year
  Sex: Female
  Weight: 68 kg

DRUGS (7)
  1. VIOXX [Suspect]
     Indication: ARTHRITIS
     Route: 048
     Dates: start: 20011001, end: 20040401
  2. MONOPRIL [Concomitant]
     Route: 065
     Dates: start: 19980101
  3. HYDROCHLOROTHIAZIDE [Concomitant]
     Route: 065
     Dates: start: 19990101
  4. LASIX [Concomitant]
     Route: 065
     Dates: start: 19990101
  5. ASPIRIN [Concomitant]
     Route: 065
     Dates: start: 20020101
  6. ALPRAZOLAM [Concomitant]
     Route: 065
  7. CEPHALEXIN [Concomitant]
     Route: 065

REACTIONS (8)
  - BLOOD CHOLESTEROL INCREASED [None]
  - BLOOD TRIGLYCERIDES INCREASED [None]
  - BRAIN NEOPLASM [None]
  - CEREBROVASCULAR ACCIDENT [None]
  - DEPRESSION [None]
  - HEMIANOPIA HOMONYMOUS [None]
  - ROAD TRAFFIC ACCIDENT [None]
  - THYROID DISORDER [None]
